FAERS Safety Report 8212721-3 (Version None)
Quarter: 2012Q1

REPORT INFORMATION
  Report Type: 
  Country: None (occurrence: None)
  Receive Date: 20120315
  Receipt Date: 20120305
  Transmission Date: 20120608
  Serious: Yes (Hospitalization, Other)
  Sender: FDA-Public Use
  Company Number: IL-MERCK-1203USA00876

PATIENT
  Age: 60 Year
  Sex: Male

DRUGS (7)
  1. INSULIN [Concomitant]
     Route: 065
  2. DISOTHIAZIDE [Concomitant]
     Route: 065
  3. LANSOPRAZOLE [Concomitant]
     Route: 065
  4. VITAMIN D (UNSPECIFIED) [Concomitant]
     Route: 065
  5. PROPECIA [Suspect]
     Indication: ALOPECIA
     Route: 048
     Dates: start: 20120118, end: 20120305
  6. LAMOTRIGINE [Concomitant]
     Route: 065
  7. RAFASSAL [Concomitant]
     Route: 065

REACTIONS (5)
  - SYNCOPE [None]
  - FALL [None]
  - DIARRHOEA [None]
  - RIB FRACTURE [None]
  - DIZZINESS [None]
